FAERS Safety Report 4356881-3 (Version None)
Quarter: 2004Q2

REPORT INFORMATION
  Report Type: 
  Country: None (occurrence: None)
  Receive Date: 20040512
  Receipt Date: 20040416
  Transmission Date: 20050107
  Serious: Yes (Hospitalization)
  Sender: FDA-Public Use
  Company Number: JP-BRISTOL-MYERS SQUIBB COMPANY-12566345

PATIENT
  Age: 72 Year
  Sex: Female

DRUGS (6)
  1. MEVALOTIN [Suspect]
     Indication: HYPERLIPIDAEMIA
     Route: 048
     Dates: start: 20030725, end: 20040405
  2. ASPIRIN [Suspect]
     Indication: ANGINA PECTORIS
     Route: 048
     Dates: start: 20021101, end: 20040405
  3. MELBIN [Suspect]
     Indication: DIABETES MELLITUS NON-INSULIN-DEPENDENT
     Dates: start: 20030307, end: 20040405
  4. KETAS [Suspect]
     Indication: LACUNAR INFARCTION
     Route: 048
     Dates: start: 20030627, end: 20040405
  5. HERBESSER [Concomitant]
     Indication: HYPERTENSION
     Dates: start: 20021101, end: 20040405
  6. SELOKEN [Concomitant]
     Indication: HYPERTENSION
     Dates: start: 20021101, end: 20040405

REACTIONS (1)
  - EOSINOPHILIC PNEUMONIA [None]
